FAERS Safety Report 4760659-6 (Version None)
Quarter: 2005Q3

REPORT INFORMATION
  Report Type: 
  Country: None (occurrence: None)
  Receive Date: 20050826
  Receipt Date: 20050127
  Transmission Date: 20060218
  Serious: Yes (Other)
  Sender: FDA-Public Use
  Company Number: USA-2005-0018568

PATIENT
  Age: 29 Year
  Sex: Male
  Weight: 73.5 kg

DRUGS (2)
  1. OXYCONTIN [Suspect]
     Indication: PAIN
     Dosage: 40 MG, Q12H, ORAL
     Route: 048
     Dates: start: 20030110
  2. MARIJUANA (CANNABIS) [Suspect]

REACTIONS (1)
  - POLYSUBSTANCE ABUSE [None]
